FAERS Safety Report 8971162 (Version 1)
Quarter: 2012Q4

REPORT INFORMATION
  Report Type: 
  Country: GB (occurrence: GB)
  Receive Date: 20121217
  Receipt Date: 20121217
  Transmission Date: 20130627
  Serious: Yes (Hospitalization)
  Sender: FDA-Public Use
  Company Number: GB-PFIZER INC-2012315874

PATIENT
  Age: 68 Year
  Sex: Male
  Weight: 119.3 kg

DRUGS (18)
  1. GENOTROPIN [Suspect]
     Dosage: 0.4 mg, 1x/day, 7 injections/week
     Route: 058
     Dates: start: 20020808
  2. ATENOLOL [Concomitant]
     Indication: HYPERTENSION
     Dosage: UNK
     Dates: start: 20011012
  3. BEZAFIBRATE [Concomitant]
     Indication: HYPERLIPIDEMIA
     Dosage: UNK
     Dates: start: 20011012
  4. ISOSORBIDE MONONITRATE [Concomitant]
     Indication: ANGINA PECTORIS
     Dosage: UNK
     Dates: start: 20011012
  5. THYROXINE [Concomitant]
     Indication: HYPOPARATHYROIDISM
     Dosage: UNK
     Dates: start: 20011012
  6. ACETYLSALICYLIC ACID [Concomitant]
     Indication: PAIN
     Dosage: UNK
     Dates: start: 20011012
  7. HYDROCORTISONE [Concomitant]
     Indication: ACTH DECREASED
     Dosage: UNK
     Dates: start: 20011012
  8. ATORVASTATIN [Concomitant]
     Indication: HYPERCHOLESTEROLEMIA
     Dosage: UNK
     Dates: start: 20020726
  9. DILTIAZEM [Concomitant]
     Indication: ANGINA PECTORIS
     Dosage: UNK
     Dates: start: 20021108
  10. AMLODIPINE BESILATE [Concomitant]
     Indication: HYPERTENSION
     Dosage: UNK
     Dates: start: 20061101
  11. BISOPROLOL [Concomitant]
     Indication: HYPERTENSION
     Dosage: UNK
     Dates: start: 20061101
  12. BISOPROLOL [Concomitant]
     Indication: ANGINA PECTORIS
  13. NICORANDIL [Concomitant]
     Indication: ANGINA PECTORIS
     Dosage: UNK
     Dates: start: 20061101
  14. LANSOPRAZOLE [Concomitant]
     Indication: STOMACH DISCOMFORT
     Dosage: UNK
     Dates: start: 20070923
  15. NEBIDO [Concomitant]
     Indication: LUTEINISING HORMONE DEFICIENCY
     Dosage: UNK
     Dates: start: 20070929
  16. NEBIDO [Concomitant]
     Indication: FOLLICLE-STIMULATING HORMONE DEFICIENCY
  17. NEBIDO [Concomitant]
     Indication: TESTICULAR HYPOGONADISM
  18. METFORMIN [Concomitant]
     Indication: DIABETES MELLITUS
     Dosage: UNK
     Dates: start: 20100201

REACTIONS (1)
  - Arthropathy [Unknown]
